FAERS Safety Report 6930991-6 (Version None)
Quarter: 2010Q3

REPORT INFORMATION
  Report Type: 
  Country: None (occurrence: None)
  Receive Date: 20100817
  Receipt Date: 20100817
  Transmission Date: 20110219
  Serious: No
  Sender: FDA-Public Use
  Company Number: None

PATIENT
  Sex: Female
  Weight: 81.8 kg

DRUGS (2)
  1. ENALAPRIL MALEATE [Suspect]
     Indication: HYPERTENSION
     Dosage: ENALAPRIL 20MG BID PO
     Route: 048
     Dates: start: 20100302, end: 20100517
  2. ENALAPRIL MALEATE [Suspect]
     Indication: TYPE 2 DIABETES MELLITUS
     Dosage: ENALAPRIL 20MG BID PO
     Route: 048
     Dates: start: 20100302, end: 20100517

REACTIONS (5)
  - CHEST PAIN [None]
  - CONDITION AGGRAVATED [None]
  - COUGH [None]
  - DRUG INTOLERANCE [None]
  - HYPERTENSION [None]
